FAERS Safety Report 13088093 (Version 1)
Quarter: 2017Q1

REPORT INFORMATION
  Report Type: Spontaneous
  Country: US (occurrence: US)
  Receive Date: 20170103
  Receipt Date: 20170103
  Transmission Date: 20170428
  Serious: Yes (Other)
  Sender: FDA-Public Use
  Company Number: None

PATIENT
  Age: 61 Year
  Sex: Female
  Weight: 85.05 kg

DRUGS (6)
  1. LOSARTAN. [Concomitant]
     Active Substance: LOSARTAN
  2. CHLORTHALIDONE. [Concomitant]
     Active Substance: CHLORTHALIDONE
  3. LYRICA [Suspect]
     Active Substance: PREGABALIN
     Indication: FIBROMYALGIA
     Dosage: QUANTITY:60 CAPSULE(S); TWICE A DAY; ORAL?
     Route: 048
     Dates: start: 20161007, end: 20161026
  4. BOSWELLA [Concomitant]
  5. POLYPODIUM [Concomitant]
  6. ACETYL L-CARNITINE [Concomitant]
     Active Substance: ACETYLCARNITINE

REACTIONS (6)
  - Mental impairment [None]
  - Road traffic accident [None]
  - Chest crushing [None]
  - Insomnia [None]
  - Aggression [None]
  - Depression [None]

NARRATIVE: CASE EVENT DATE: 20161026
